FAERS Safety Report 4646379-7 (Version None)
Quarter: 2005Q2

REPORT INFORMATION
  Report Type: 
  Country: None (occurrence: None)
  Receive Date: 20050422
  Receipt Date: 20050422
  Transmission Date: 20051028
  Serious: Yes (Hospitalization)
  Sender: FDA-Public Use
  Company Number: None

PATIENT
  Age: 82 Year
  Sex: Male
  Weight: 77.6 kg

DRUGS (14)
  1. UNASYN [Suspect]
  2. FOLIC ACID [Concomitant]
  3. OMEPRAZOLE [Concomitant]
  4. MAGNESIUM HYDROXIDE TAB [Concomitant]
  5. BISACODYL [Concomitant]
  6. FOSINOPRIL [Concomitant]
  7. ATENOLOL [Concomitant]
  8. ASPIRIN [Concomitant]
  9. LORAZEPAM [Concomitant]
  10. ACETAMINOPHEN [Concomitant]
  11. WARFARIN [Concomitant]
  12. QUETIAPINE FUMARATE [Concomitant]
  13. INSULIN REG HUMAN 100 U/ML INJ NOVOLIN R [Concomitant]
  14. INSULIN NPH HUMAN INJ [Concomitant]

REACTIONS (2)
  - CLOSTRIDIAL INFECTION [None]
  - DIARRHOEA [None]
